FAERS Safety Report 10707582 (Version 1)
Quarter: 2015Q1

REPORT INFORMATION
  Report Type: Spontaneous
  Country: US (occurrence: None)
  Receive Date: 20150112
  Receipt Date: 20150112
  Transmission Date: 20150721
  Serious: Yes (Life-Threatening, Hospitalization)
  Sender: FDA-Public Use
  Company Number: None

PATIENT
  Age: 42 Year
  Sex: Female
  Weight: 59.88 kg

DRUGS (1)
  1. TECFIDERA [Suspect]
     Active Substance: DIMETHYL FUMARATE
     Indication: MULTIPLE SCLEROSIS
     Route: 048

REACTIONS (9)
  - Drug interaction [None]
  - Gastrointestinal disorder [None]
  - Serotonin syndrome [None]
  - Burning sensation [None]
  - Menstrual disorder [None]
  - Abdominal distension [None]
  - Alopecia [None]
  - Flushing [None]
  - Toxicity to various agents [None]

NARRATIVE: CASE EVENT DATE: 20141220
